FAERS Safety Report 9048867 (Version 1)
Quarter: 2013Q1

REPORT INFORMATION
  Report Type: Spontaneous
  Country: US (occurrence: None)
  Receive Date: 20130130
  Receipt Date: 20130130
  Transmission Date: 20140127
  Serious: Yes (Other)
  Sender: FDA-Public Use
  Company Number: None

PATIENT
  Sex: Female
  Weight: 69.4 kg

DRUGS (1)
  1. NUVIGIL 150 MG TEVA/CEPHALON [Suspect]
     Indication: HYPERSOMNIA
     Route: 048
     Dates: start: 20121102, end: 20121115

REACTIONS (4)
  - Pyrexia [None]
  - Dyspnoea [None]
  - Back pain [None]
  - Rash maculo-papular [None]
